FAERS Safety Report 8010652-5 (Version None)
Quarter: 2011Q4

REPORT INFORMATION
  Report Type: 
  Country: None (occurrence: None)
  Receive Date: 20111228
  Receipt Date: 20111221
  Transmission Date: 20120403
  Serious: Yes (Hospitalization, Other)
  Sender: FDA-Public Use
  Company Number: PHHY2011CA100580

PATIENT
  Sex: Male

DRUGS (5)
  1. PANTOPRAZOLE SODIUM [Concomitant]
     Dosage: 40 MG, DAILY
  2. FENOFIBRATE [Concomitant]
     Dosage: 100 MG, DAILY
  3. TIAZAC [Concomitant]
     Dosage: 360 MG, DAILY
  4. LASIX [Concomitant]
     Dosage: 40 MG, DAILY
  5. TASIGNA [Suspect]
     Indication: CHRONIC MYELOID LEUKAEMIA
     Dosage: 400 MG, BID
     Route: 048
     Dates: start: 20110816, end: 20110820

REACTIONS (4)
  - PANCREATITIS ACUTE [None]
  - LIPASE INCREASED [None]
  - ABDOMINAL DISTENSION [None]
  - ABDOMINAL PAIN [None]
